FAERS Safety Report 25749943 (Version 1)
Quarter: 2025Q3

REPORT INFORMATION
  Report Type: Spontaneous
  Country: US (occurrence: US)
  Receive Date: 20250902
  Receipt Date: 20250902
  Transmission Date: 20251020
  Serious: Yes (Other)
  Sender: SANOFI AVENTIS
  Company Number: US-DialogSolutions-SAAVPROD-PI816564-C1

PATIENT
  Age: 36 Year
  Sex: Male

DRUGS (24)
  1. CLOFARABINE [Suspect]
     Active Substance: CLOFARABINE
     Indication: T-cell lymphoma
  2. CLOFARABINE [Suspect]
     Active Substance: CLOFARABINE
     Indication: Diffuse large B-cell lymphoma
  3. DEXAMETHASONE [Suspect]
     Active Substance: DEXAMETHASONE
     Indication: Haemophagocytic lymphohistiocytosis
  4. GEMCITABINE [Suspect]
     Active Substance: GEMCITABINE
     Indication: T-cell lymphoma
  5. GEMCITABINE [Suspect]
     Active Substance: GEMCITABINE
     Indication: Diffuse large B-cell lymphoma
  6. BUSULFAN [Suspect]
     Active Substance: BUSULFAN
     Indication: T-cell lymphoma
  7. BUSULFAN [Suspect]
     Active Substance: BUSULFAN
     Indication: Diffuse large B-cell lymphoma
  8. ETOPOSIDE [Suspect]
     Active Substance: ETOPOSIDE
     Indication: Haemophagocytic lymphohistiocytosis
  9. ETOPOSIDE [Suspect]
     Active Substance: ETOPOSIDE
     Indication: T-cell lymphoma
  10. ETOPOSIDE [Suspect]
     Active Substance: ETOPOSIDE
     Indication: Diffuse large B-cell lymphoma
  11. RITUXIMAB [Suspect]
     Active Substance: RITUXIMAB
     Indication: Diffuse large B-cell lymphoma
  12. RITUXIMAB [Suspect]
     Active Substance: RITUXIMAB
     Indication: T-cell lymphoma
  13. METHOTREXATE [Suspect]
     Active Substance: METHOTREXATE
     Indication: Diffuse large B-cell lymphoma
  14. METHOTREXATE [Suspect]
     Active Substance: METHOTREXATE
     Indication: T-cell lymphoma
  15. VINCRISTINE [Suspect]
     Active Substance: VINCRISTINE
     Indication: Diffuse large B-cell lymphoma
  16. VINCRISTINE [Suspect]
     Active Substance: VINCRISTINE
     Indication: T-cell lymphoma
  17. PROCARBAZINE [Suspect]
     Active Substance: PROCARBAZINE
     Indication: T-cell lymphoma
  18. PROCARBAZINE [Suspect]
     Active Substance: PROCARBAZINE
     Indication: Diffuse large B-cell lymphoma
  19. CYTARABINE [Suspect]
     Active Substance: CYTARABINE
     Indication: Diffuse large B-cell lymphoma
  20. CYTARABINE [Suspect]
     Active Substance: CYTARABINE
     Indication: T-cell lymphoma
  21. THIOTEPA [Suspect]
     Active Substance: THIOTEPA
     Indication: T-cell lymphoma
  22. THIOTEPA [Suspect]
     Active Substance: THIOTEPA
     Indication: Diffuse large B-cell lymphoma
  23. CISPLATIN [Suspect]
     Active Substance: CISPLATIN
     Indication: Diffuse large B-cell lymphoma
  24. CISPLATIN [Suspect]
     Active Substance: CISPLATIN
     Indication: T-cell lymphoma

REACTIONS (6)
  - Chronic graft versus host disease [Recovered/Resolved]
  - Guillain-Barre syndrome [Recovered/Resolved]
  - Arthritis bacterial [Recovered/Resolved]
  - Pneumococcal infection [Recovered/Resolved]
  - COVID-19 pneumonia [Recovered/Resolved]
  - Off label use [Unknown]
